FAERS Safety Report 15406022 (Version 2)
Quarter: 2018Q3

REPORT INFORMATION
  Report Type: Spontaneous
  Country: US (occurrence: US)
  Receive Date: 20180920
  Receipt Date: 20180921
  Transmission Date: 20181010
  Serious: No
  Sender: FDA-Public Use
  Company Number: US-PFIZER INC-2018374671

PATIENT
  Age: 66 Year

DRUGS (2)
  1. IBRANCE [Suspect]
     Active Substance: PALBOCICLIB
     Dosage: 125 MG, UNK
  2. FULVESTRANT. [Suspect]
     Active Substance: FULVESTRANT
     Dosage: UNK

REACTIONS (1)
  - Neoplasm progression [Unknown]
